FAERS Safety Report 17728663 (Version 3)
Quarter: 2021Q3

REPORT INFORMATION
  Report Type: Report from Study
  Country: US (occurrence: US)
  Receive Date: 20200430
  Receipt Date: 20210908
  Transmission Date: 20211014
  Serious: No
  Sender: FDA-Public Use
  Company Number: US-B.I. PHARMACEUTICALS,INC./RIDGEFIELD-2020-US-022311

PATIENT
  Age: 73 Year
  Sex: Female

DRUGS (1)
  1. OFEV [Suspect]
     Active Substance: NINTEDANIB
     Indication: IDIOPATHIC PULMONARY FIBROSIS
     Dosage: 150MG BID, LOT NUMBER: 720,902802,809177A,901709,902050,905194
     Route: 048
     Dates: start: 20210501

REACTIONS (14)
  - Flatulence [Not Recovered/Not Resolved]
  - Diarrhoea [Not Recovered/Not Resolved]
  - Nausea [Unknown]
  - Malaise [Unknown]
  - Fatigue [Not Recovered/Not Resolved]
  - Hepatic enzyme increased [Recovered/Resolved]
  - Taste disorder [Not Recovered/Not Resolved]
  - Dizziness [Unknown]
  - Abdominal pain upper [Not Recovered/Not Resolved]
  - Hepatic enzyme increased [Unknown]
  - Anxiety [Not Recovered/Not Resolved]
  - Depressed mood [Recovered/Resolved]
  - Abdominal discomfort [Unknown]
  - Diarrhoea [Not Recovered/Not Resolved]

NARRATIVE: CASE EVENT DATE: 20200429
